FAERS Safety Report 23383106 (Version 1)
Quarter: 2024Q1

REPORT INFORMATION
  Report Type: Spontaneous
  Country: CN (occurrence: CN)
  Receive Date: 20240109
  Receipt Date: 20240109
  Transmission Date: 20240410
  Serious: Yes (Hospitalization, Other)
  Sender: FDA-Public Use
  Company Number: CN-SA-2024SA003478

PATIENT
  Age: 64 Year
  Sex: Male

DRUGS (4)
  1. DOCETAXEL [Suspect]
     Active Substance: DOCETAXEL\DOCETAXEL ANHYDROUS
     Indication: Tonsil cancer
     Dosage: 130 MG
     Dates: start: 20210922
  2. NEDAPLATIN [Suspect]
     Active Substance: NEDAPLATIN
     Indication: Tonsil cancer
     Dosage: 160 MG, ONCE EVERY THREE WEEKS
     Dates: start: 20210922
  3. NIMOTUZUMAB [Suspect]
     Active Substance: NIMOTUZUMAB
     Indication: Tonsil cancer
     Dosage: 200 MG, ONCE EVERY WEEK
     Dates: start: 20210922
  4. SULODEXIDE [Concomitant]
     Active Substance: SULODEXIDE
     Indication: Thrombosis prophylaxis
     Dosage: 250 LSU/ CAPSULE, PER ORAL, TWICE DAILY
     Route: 048

REACTIONS (10)
  - Cerebral infarction [Recovering/Resolving]
  - Cerebellar infarction [Recovering/Resolving]
  - Lacunar infarction [Recovering/Resolving]
  - Hypokinesia [Recovering/Resolving]
  - Hypoaesthesia [Recovering/Resolving]
  - Speech disorder [Recovering/Resolving]
  - Leukopenia [Recovering/Resolving]
  - Nausea [Recovering/Resolving]
  - Vomiting [Recovering/Resolving]
  - Decreased appetite [Recovering/Resolving]
